FAERS Safety Report 5025202-5 (Version None)
Quarter: 2006Q2

REPORT INFORMATION
  Report Type: 
  Country: None (occurrence: None)
  Receive Date: 20060613
  Receipt Date: 20060607
  Transmission Date: 20061013
  Serious: Yes (Hospitalization)
  Sender: FDA-Public Use
  Company Number: JP-JPN-A200601905

PATIENT
  Age: 66 Year
  Sex: Male
  Weight: 54 kg

DRUGS (3)
  1. VALTREX [Suspect]
     Indication: HERPES ZOSTER
     Dosage: 500MG TWICE PER DAY
     Route: 048
     Dates: start: 20060601, end: 20060603
  2. CYANOCOBALAMIN [Concomitant]
     Route: 048
  3. CRAVIT [Concomitant]
     Route: 048

REACTIONS (3)
  - DELUSION [None]
  - HALLUCINATION [None]
  - TOXIC INDUCED ENCEPHALOPATHY [None]
